FAERS Safety Report 4713224-0 (Version None)
Quarter: 2005Q3

REPORT INFORMATION
  Report Type: 
  Country: None (occurrence: None)
  Receive Date: 20050713
  Receipt Date: 20050222
  Transmission Date: 20060218
  Serious: Yes (Other)
  Sender: FDA-Public Use
  Company Number: US-MERCK-0502USA03169

PATIENT
  Age: 43 Year
  Sex: Female
  Weight: 57 kg

DRUGS (10)
  1. VIOXX [Suspect]
     Indication: LIGAMENT REPAIR
     Route: 048
     Dates: end: 20041001
  2. PERCOCET [Concomitant]
     Route: 065
  3. TORADOL [Concomitant]
     Route: 065
  4. WARFARIN [Concomitant]
     Route: 065
  5. ALESSE [Concomitant]
     Route: 065
  6. HYDROCODONE BITARTRATE [Concomitant]
     Route: 065
  7. METHYLPREDNISOLONE [Concomitant]
     Route: 065
  8. BEXTRA [Concomitant]
     Route: 065
     Dates: start: 20040101
  9. VIOXX [Suspect]
     Route: 048
     Dates: start: 20030201
  10. VIOXX [Suspect]
     Route: 048

REACTIONS (4)
  - DEEP VEIN THROMBOSIS [None]
  - PAIN [None]
  - PARATHYROID DISORDER [None]
  - PULMONARY EMBOLISM [None]
